FAERS Safety Report 4891842-7 (Version None)
Quarter: 2006Q1

REPORT INFORMATION
  Report Type: 
  Country: None (occurrence: None)
  Receive Date: 20060126
  Receipt Date: 20060119
  Transmission Date: 20060701
  Serious: Yes (Hospitalization)
  Sender: FDA-Public Use
  Company Number: 2006CG00147

PATIENT
  Age: 70 Year
  Sex: Male
  Weight: 75 kg

DRUGS (9)
  1. ATACAND [Suspect]
     Indication: ESSENTIAL HYPERTENSION
     Route: 048
     Dates: start: 20051001
  2. ZYLORIC [Suspect]
     Indication: GOUT
     Route: 048
     Dates: end: 20051130
  3. FUROSEMIDE [Suspect]
     Indication: ESSENTIAL HYPERTENSION
     Route: 048
     Dates: start: 20051001
  4. ANAFRANIL [Suspect]
     Indication: DYSTHYMIC DISORDER
     Route: 048
     Dates: end: 20051130
  5. VICTAN [Suspect]
     Indication: DYSTHYMIC DISORDER
     Route: 048
     Dates: end: 20051130
  6. PROSCAR [Concomitant]
     Indication: PROSTATE CANCER STAGE 0
     Route: 048
  7. LERCAN [Concomitant]
     Dates: start: 20050101, end: 20051001
  8. TAHOR [Concomitant]
     Dates: start: 20050101
  9. DETENSIEL [Concomitant]

REACTIONS (2)
  - ANTINUCLEAR ANTIBODY POSITIVE [None]
  - COOMBS POSITIVE HAEMOLYTIC ANAEMIA [None]
